FAERS Safety Report 19273987 (Version 2)
Quarter: 2021Q2

REPORT INFORMATION
  Report Type: Spontaneous
  Country: US (occurrence: US)
  Receive Date: 20210519
  Receipt Date: 20210615
  Transmission Date: 20210717
  Serious: Yes (Other)
  Sender: FDA-Public Use
  Company Number: US-BAYER-2021-141316

PATIENT
  Age: 17 Year
  Sex: Female
  Weight: 61.68 kg

DRUGS (1)
  1. KYLEENA [Suspect]
     Active Substance: LEVONORGESTREL
     Indication: CONTRACEPTION
     Dosage: 17.5  ?G PER DAY, CONTINUOUSLY
     Route: 015
     Dates: start: 20201210, end: 20210505

REACTIONS (4)
  - Vaginal haemorrhage [Recovering/Resolving]
  - Post procedural haemorrhage [Recovering/Resolving]
  - Genital haemorrhage [Recovering/Resolving]
  - Embedded device [Recovering/Resolving]

NARRATIVE: CASE EVENT DATE: 20201210
